FAERS Safety Report 24730682 (Version 7)
Quarter: 2025Q4

REPORT INFORMATION
  Report Type: Report from Study
  Country: CN (occurrence: CN)
  Receive Date: 20241213
  Receipt Date: 20251224
  Transmission Date: 20260117
  Serious: Yes (Hospitalization)
  Sender: ROCHE
  Company Number: CN-ROCHE-10000061038

PATIENT
  Age: 52 Year
  Sex: Female
  Weight: 77 kg

DRUGS (42)
  1. POLATUZUMAB VEDOTIN [Suspect]
     Active Substance: POLATUZUMAB VEDOTIN
     Indication: Diffuse large B-cell lymphoma
     Dosage: THE LAST POLATUZUMAB VEDOTIN USAGE DATE 09-JUL-2024
     Route: 041
     Dates: start: 20240618, end: 20240618
  2. POLATUZUMAB VEDOTIN [Suspect]
     Active Substance: POLATUZUMAB VEDOTIN
     Route: 041
     Dates: start: 20240710, end: 20240710
  3. OBINUTUZUMAB [Suspect]
     Active Substance: OBINUTUZUMAB
     Indication: Diffuse large B-cell lymphoma
     Route: 041
     Dates: start: 20240617, end: 20240617
  4. OBINUTUZUMAB [Suspect]
     Active Substance: OBINUTUZUMAB
     Route: 041
     Dates: start: 20240709, end: 20240709
  5. DEXAMETHASONE [Suspect]
     Active Substance: DEXAMETHASONE
     Indication: Diffuse large B-cell lymphoma
     Route: 041
     Dates: start: 20240618, end: 20240620
  6. DEXAMETHASONE [Suspect]
     Active Substance: DEXAMETHASONE
     Route: 041
     Dates: start: 20240710, end: 20240710
  7. DEXAMETHASONE [Suspect]
     Active Substance: DEXAMETHASONE
     Route: 041
     Dates: start: 20240711, end: 20240714
  8. CYCLOPHOSPHAMIDE [Suspect]
     Active Substance: CYCLOPHOSPHAMIDE
     Indication: Diffuse large B-cell lymphoma
     Route: 041
     Dates: start: 20240618, end: 20240618
  9. CYCLOPHOSPHAMIDE [Suspect]
     Active Substance: CYCLOPHOSPHAMIDE
     Route: 041
     Dates: start: 20240710, end: 20240710
  10. MITOXANTRONE [Suspect]
     Active Substance: MITOXANTRONE HYDROCHLORIDE
     Indication: Diffuse large B-cell lymphoma
     Route: 041
     Dates: start: 20240618, end: 20240618
  11. MITOXANTRONE [Suspect]
     Active Substance: MITOXANTRONE HYDROCHLORIDE
     Route: 041
     Dates: start: 20240710, end: 20240710
  12. VINCRISTINE [Suspect]
     Active Substance: VINCRISTINE
     Indication: Diffuse large B-cell lymphoma
  13. METHOTREXATE [Suspect]
     Active Substance: METHOTREXATE
     Indication: Diffuse large B-cell lymphoma
  14. Moxifloxacin hydrochloride sodium chloride injection [Concomitant]
     Route: 041
     Dates: start: 20240816, end: 20240819
  15. AMLODIPINE BESYLATE [Concomitant]
     Active Substance: AMLODIPINE BESYLATE
     Dosage: DRUG DOSE FIRST ADMINISTERED IS 1 TABLET
     Route: 048
     Dates: start: 2018
  16. VALACYCLOVIR HYDROCHLORIDE [Concomitant]
     Active Substance: VALACYCLOVIR HYDROCHLORIDE
     Route: 048
     Dates: start: 20240816, end: 20240902
  17. METHOTREXATE [Concomitant]
     Active Substance: METHOTREXATE
  18. METHOTREXATE [Concomitant]
     Active Substance: METHOTREXATE
  19. Biapenem for Injection [Concomitant]
     Route: 041
     Dates: start: 20240819, end: 20240902
  20. CYTARABINE [Concomitant]
     Active Substance: CYTARABINE
  21. CYTARABINE [Concomitant]
     Active Substance: CYTARABINE
  22. Teicoplanin for Injection [Concomitant]
     Route: 041
     Dates: start: 20240819, end: 20240902
  23. CASPOFUNGIN ACETATE [Concomitant]
     Active Substance: CASPOFUNGIN ACETATE
     Route: 041
     Dates: start: 20240819, end: 20240902
  24. DEXAMETHASONE SODIUM PHOSPHATE [Concomitant]
     Active Substance: DEXAMETHASONE SODIUM PHOSPHATE
  25. DEXAMETHASONE SODIUM PHOSPHATE [Concomitant]
     Active Substance: DEXAMETHASONE SODIUM PHOSPHATE
  26. DEXAMETHASONE SODIUM PHOSPHATE [Concomitant]
     Active Substance: DEXAMETHASONE SODIUM PHOSPHATE
  27. SULFAMETHOXAZOLE [Concomitant]
     Active Substance: SULFAMETHOXAZOLE
     Route: 048
     Dates: start: 20240819, end: 20240902
  28. METHYLPREDNISOLONE SODIUM SUCCINATE [Concomitant]
     Active Substance: METHYLPREDNISOLONE SODIUM SUCCINATE
     Route: 041
     Dates: start: 20240827, end: 20240829
  29. METHYLPREDNISOLONE SODIUM SUCCINATE [Concomitant]
     Active Substance: METHYLPREDNISOLONE SODIUM SUCCINATE
     Route: 041
     Dates: start: 20240830, end: 20240902
  30. Magnesium Isoglycyrrhizinate Injection [Concomitant]
     Route: 041
     Dates: start: 20240709, end: 20240710
  31. Recombinant Human Granulocyte Colony-stimulating Factor Injection [Concomitant]
     Route: 058
     Dates: start: 20240819, end: 20240819
  32. Recombinant Human Granulocyte Colony-stimulating Factor Injection [Concomitant]
     Route: 058
     Dates: start: 20240824, end: 20240824
  33. Recombinant Human Granulocyte Colony-stimulating Factor Injection [Concomitant]
     Route: 058
     Dates: start: 20240901, end: 20240901
  34. Diammonium Glycyrrhizinate Enteric-coated Capsules [Concomitant]
     Dosage: DRUG DOSE FIRST ADMINISTERED IS 3 CAPSULE
     Route: 048
     Dates: start: 20240710
  35. Compound menthol nose drops [Concomitant]
     Dosage: DRUG DOSE FIRST ADMINISTERED IS 1 OTHER
  36. Polyene Phosphatidylcholine Capsules [Concomitant]
     Dosage: DRUG DOSE FIRST ADMINISTERED IS 1 CAPSULE
     Route: 048
     Dates: start: 20240710
  37. METHYLPREDNISOLONE [Concomitant]
     Active Substance: METHYLPREDNISOLONE
     Route: 048
     Dates: start: 20240902, end: 20240909
  38. CEFTIZOXIME SODIUM [Concomitant]
     Active Substance: CEFTIZOXIME SODIUM
     Route: 041
     Dates: start: 20240816, end: 20240819
  39. ROXATIDINE ACETATE HYDROCHLORIDE [Concomitant]
     Active Substance: ROXATIDINE ACETATE HYDROCHLORIDE
     Route: 041
     Dates: start: 20240816, end: 20240816
  40. SODIUM BICARBONATE [Concomitant]
     Active Substance: SODIUM BICARBONATE
     Route: 041
     Dates: start: 20240816, end: 20240902
  41. AMILORIDE HYDROCHLORIDE [Concomitant]
     Active Substance: AMILORIDE HYDROCHLORIDE
     Route: 048
     Dates: start: 20240819, end: 20240902
  42. ESOMEPRAZOLE MAGNESIUM [Concomitant]
     Active Substance: ESOMEPRAZOLE MAGNESIUM
     Route: 048
     Dates: start: 20240827, end: 20240902

REACTIONS (6)
  - Anaemia [Recovered/Resolved]
  - Pneumonia [Recovered/Resolved]
  - Aspartate aminotransferase increased [Recovered/Resolved]
  - Alanine aminotransferase increased [Recovered/Resolved]
  - White blood cell count decreased [Recovered/Resolved]
  - Neutrophil count decreased [Recovered/Resolved]

NARRATIVE: CASE EVENT DATE: 20240709
